FAERS Safety Report 4990354-X (Version None)
Quarter: 2006Q2

REPORT INFORMATION
  Report Type: 
  Country: None (occurrence: None)
  Receive Date: 20060427
  Receipt Date: 20060421
  Transmission Date: 20061013
  Serious: Yes (Hospitalization)
  Sender: FDA-Public Use
  Company Number: FRWYE570621APR06

PATIENT
  Age: 73 Year
  Sex: Male

DRUGS (3)
  1. EFFEXOR XR [Suspect]
     Indication: DEPRESSION
     Dosage: 37.5 MG 1X PER 1 DAY
     Route: 048
  2. FUROSEMIDE [Suspect]
     Route: 048
     Dates: end: 20060401
  3. SOLUPRED (PREDNISOLONE SODIUM SULFOBENZOATE, , 0) [Suspect]
     Route: 048

REACTIONS (6)
  - BLOOD CHLORIDE DECREASED [None]
  - FEMORAL NECK FRACTURE [None]
  - HYPERKALAEMIA [None]
  - HYPONATRAEMIA [None]
  - OEDEMA GENITAL [None]
  - OEDEMA PERIPHERAL [None]
